FAERS Safety Report 16210389 (Version 1)
Quarter: 2019Q2

REPORT INFORMATION
  Report Type: Spontaneous
  Country: CZ (occurrence: CZ)
  Receive Date: 20190418
  Receipt Date: 20190418
  Transmission Date: 20190711
  Serious: Yes (Other)
  Sender: FDA-Public Use
  Company Number: PHHY2019CZ086094

PATIENT
  Sex: Male

DRUGS (4)
  1. VOTRIENT [Suspect]
     Active Substance: PAZOPANIB HYDROCHLORIDE
     Dosage: 400 MG, UNK
     Route: 065
  2. VOTRIENT [Suspect]
     Active Substance: PAZOPANIB HYDROCHLORIDE
     Dosage: 800 MG, QD
     Route: 065
  3. VOTRIENT [Suspect]
     Active Substance: PAZOPANIB HYDROCHLORIDE
     Indication: SOFT TISSUE SARCOMA
     Dosage: 400 MG, UNK
     Route: 065
     Dates: start: 20180608
  4. VOTRIENT [Suspect]
     Active Substance: PAZOPANIB HYDROCHLORIDE
     Dosage: 600 MG, QD
     Route: 065

REACTIONS (10)
  - Soft tissue sarcoma [Unknown]
  - Dyspnoea exertional [Recovering/Resolving]
  - Rash [Recovered/Resolved]
  - Dyspnoea [Recovering/Resolving]
  - Blood creatinine increased [Not Recovered/Not Resolved]
  - Malignant neoplasm progression [Unknown]
  - Hypertension [Recovered/Resolved]
  - Hypokalaemia [Unknown]
  - Erythema [Unknown]
  - Cough [Recovering/Resolving]

NARRATIVE: CASE EVENT DATE: 201809
